FAERS Safety Report 24445338 (Version 2)
Quarter: 2025Q3

REPORT INFORMATION
  Report Type: Spontaneous
  Country: EG (occurrence: EG)
  Receive Date: 20241016
  Receipt Date: 20250804
  Transmission Date: 20251020
  Serious: Yes (Other)
  Sender: HIKMA
  Company Number: EG-HIKMA PHARMACEUTICALS-EG-H14001-24-09535

PATIENT
  Age: 67 Year
  Sex: Female
  Weight: 95 kg

DRUGS (4)
  1. PACLITAXEL [Suspect]
     Active Substance: PACLITAXEL
     Dosage: 142 MILLIGRAM, WEEKLY
     Route: 041
     Dates: start: 20240904
  2. PACLITAXEL [Suspect]
     Active Substance: PACLITAXEL
     Indication: Breast cancer
     Dosage: 142 MILLIGRAM, WEEKLY, FIRST CHEMOTHERAPY CYCLE 1 WEEK 1
     Route: 041
     Dates: start: 20240418
  3. DEXAMETHASONE [Concomitant]
     Active Substance: DEXAMETHASONE
     Indication: Chemotherapy side effect prophylaxis
     Route: 041
  4. PIRAFENE [Concomitant]
     Indication: Chemotherapy side effect prophylaxis
     Route: 041

REACTIONS (8)
  - Urinary incontinence [Unknown]
  - Left atrial enlargement [Unknown]
  - Oedema peripheral [Unknown]
  - Tachycardia [Unknown]
  - Mitral valve incompetence [Unknown]
  - Constipation [Unknown]
  - Vomiting [Unknown]
  - Seizure [Unknown]

NARRATIVE: CASE EVENT DATE: 20240101
